FAERS Safety Report 8227786-2 (Version None)
Quarter: 2012Q1

REPORT INFORMATION
  Report Type: 
  Country: None (occurrence: None)
  Receive Date: 20120322
  Receipt Date: 20120315
  Transmission Date: 20120608
  Serious: Yes (Other)
  Sender: FDA-Public Use
  Company Number: JP-ROCHE-1047771

PATIENT
  Sex: Male
  Weight: 15 kg

DRUGS (5)
  1. POLARAMINE [Concomitant]
     Indication: RESPIRATORY TRACT IRRITATION
     Route: 065
     Dates: start: 20120219, end: 20120224
  2. MUCODYNE [Concomitant]
     Indication: RESPIRATORY TRACT IRRITATION
     Route: 048
     Dates: start: 20120219, end: 20120224
  3. CEFTRIAXONE SODIUM [Concomitant]
     Indication: RESPIRATORY TRACT INFECTION
     Route: 041
     Dates: start: 20120220, end: 20120220
  4. SENEGA [Concomitant]
     Indication: RESPIRATORY TRACT IRRITATION
     Route: 048
     Dates: start: 20120219, end: 20120224
  5. TAMIFLU [Suspect]
     Indication: INFLUENZA
     Route: 048
     Dates: start: 20120219, end: 20120221

REACTIONS (2)
  - FEBRILE CONVULSION [None]
  - ABNORMAL BEHAVIOUR [None]
